FAERS Safety Report 8197600-2 (Version None)
Quarter: 2012Q1

REPORT INFORMATION
  Report Type: 
  Country: None (occurrence: None)
  Receive Date: 20120309
  Receipt Date: 20120227
  Transmission Date: 20120608
  Serious: Yes (Death)
  Sender: FDA-Public Use
  Company Number: US-SANOFI-AVENTIS-2012SA003341

PATIENT
  Age: 82 Year
  Sex: Male
  Weight: 72.6 kg

DRUGS (2)
  1. AMBIEN [Suspect]
     Indication: SLEEP DISORDER
     Route: 065
     Dates: start: 20110423, end: 20110423
  2. ALBUTEROL [Suspect]
     Route: 065
     Dates: end: 20110401

REACTIONS (6)
  - PAIN [None]
  - LOSS OF CONSCIOUSNESS [None]
  - CARDIO-RESPIRATORY ARREST [None]
  - BRAIN STEM SYNDROME [None]
  - VOMITING [None]
  - CARDIAC FAILURE CONGESTIVE [None]
